FAERS Safety Report 9158640 (Version 1)
Quarter: 2013Q1

REPORT INFORMATION
  Report Type: Spontaneous
  Country: US (occurrence: US)
  Receive Date: 20130312
  Receipt Date: 20130312
  Transmission Date: 20140127
  Serious: Yes (Death, Other)
  Sender: FDA-Public Use
  Company Number: US-COVIDIEN/TYCO HEALTHCARE/MALLINCKRODT-T201300077

PATIENT
  Age: 61 Year
  Sex: Male

DRUGS (9)
  1. MORPHINE [Suspect]
     Indication: PAIN
     Dosage: 6 TABS (600MG/DAY)
     Route: 048
     Dates: start: 2009
  2. MORPHINE [Suspect]
     Indication: TRIGEMINAL NEURALGIA
     Dosage: 600 MG, TID
  3. MORPHINE [Suspect]
     Dosage: 900 MG, TID
  4. DECONGESTANT/ANTIHISTAMINE [Concomitant]
     Dosage: UNK
  5. DILAUDID [Concomitant]
     Indication: CROHN^S DISEASE
     Dosage: 4 MG, QID
     Dates: start: 1990
  6. PREDNISONE [Concomitant]
     Indication: ADDISON^S DISEASE
     Dosage: 2 MG, QD
  7. ASPIRIN [Concomitant]
     Indication: ADDISON^S DISEASE
     Dosage: UNK, QD
  8. ASPIRIN [Concomitant]
     Dosage: UNK
  9. HYTRIN [Concomitant]
     Indication: PROSTATOMEGALY
     Dosage: UNK

REACTIONS (5)
  - Intentional drug misuse [Not Recovered/Not Resolved]
  - Fall [Unknown]
  - Euphoric mood [Unknown]
  - Dry mouth [Not Recovered/Not Resolved]
  - Pain [Unknown]
